FAERS Safety Report 6536546-X (Version None)
Quarter: 2010Q1

REPORT INFORMATION
  Report Type: 
  Country: None (occurrence: None)
  Receive Date: 20100106
  Receipt Date: 20091227
  Transmission Date: 20100710
  Serious: Yes (Life-Threatening, Hospitalization)
  Sender: FDA-Public Use
  Company Number: CIP09003312

PATIENT
  Age: 78 Year
  Sex: Female

DRUGS (8)
  1. RISEDRONATE SODIUM [Suspect]
     Indication: OSTEOPOROSIS
     Dosage: 17.5 MG WEEKLY, ORAL
     Route: 048
     Dates: start: 20090713, end: 20090806
  2. PREDNISOLONE [Suspect]
     Indication: PEMPHIGOID
     Dosage: 30 MG UNKNOWN
     Dates: start: 20090703, end: 20090806
  3. ALLELOCK (OLOPATADINE HYDROCHLORIDE) [Concomitant]
  4. GAMOFA (FAMOTIDINE) [Concomitant]
  5. NICOTINAMIDE [Concomitant]
  6. MINOCYCLINE HCL [Concomitant]
  7. GOODMIN (BROTIZOLAM) [Concomitant]
  8. MYSER /01249201/ (DIFLUPREDNATE) [Concomitant]

REACTIONS (4)
  - LEUKOPENIA [None]
  - PSEUDOMONAS INFECTION [None]
  - SEPSIS [None]
  - VIRAL INFECTION [None]
